FAERS Safety Report 15963665 (Version 1)
Quarter: 2019Q1

REPORT INFORMATION
  Report Type: Spontaneous
  Country: US (occurrence: US)
  Receive Date: 20190214
  Receipt Date: 20190214
  Transmission Date: 20190417
  Serious: No
  Sender: FDA-Public Use
  Company Number: US-COLLEGIUM PHARMACEUTICAL, INC.-2019CGM00014

PATIENT
  Sex: Female
  Weight: 47.62 kg

DRUGS (4)
  1. XTAMPZA ER [Suspect]
     Active Substance: OXYCODONE
     Dosage: 18 MG, 3X/DAY VIA J-TUBE
  2. 17-20 UNSPECIFIED MEDICATIONS [Concomitant]
     Dosage: UNK
  3. OTHER MEDICATIONS FOR PAIN [Suspect]
     Active Substance: UNSPECIFIED INGREDIENT
     Indication: PAIN
     Dosage: UNK
     Dates: end: 2018
  4. XTAMPZA ER [Suspect]
     Active Substance: OXYCODONE
     Indication: PAIN
     Dosage: 18 MG, 3X/DAY VIA J-TUBE
     Dates: start: 2017, end: 2018

REACTIONS (5)
  - Drug effect incomplete [Not Recovered/Not Resolved]
  - Wound [Not Recovered/Not Resolved]
  - Inappropriate schedule of product administration [Not Recovered/Not Resolved]
  - Product administration error [Not Recovered/Not Resolved]
  - Thermal burn [Not Recovered/Not Resolved]

NARRATIVE: CASE EVENT DATE: 2017
